FAERS Safety Report 17250420 (Version 2)
Quarter: 2020Q1

REPORT INFORMATION
  Report Type: Spontaneous
  Country: FR (occurrence: FR)
  Receive Date: 20200109
  Receipt Date: 20200211
  Transmission Date: 20200409
  Serious: Yes (Other)
  Sender: FDA-Public Use
  Company Number: FR-CELLTRION INC.-2019FR027559

PATIENT

DRUGS (4)
  1. RITUXIMAB (UNKNOWN) [Suspect]
     Active Substance: RITUXIMAB
     Dosage: 375 MG/M2
     Route: 041
  2. VEMURAFENIB. [Suspect]
     Active Substance: VEMURAFENIB
     Indication: HAIRY CELL LEUKAEMIA
     Dosage: 960 MG, TWICE DAILY
     Route: 065
  3. RITUXIMAB (UNKNOWN) [Suspect]
     Active Substance: RITUXIMAB
     Indication: SYSTEMIC MASTOCYTOSIS
     Dosage: UNK, 2 CYCLES
     Route: 065
  4. RITUXIMAB (UNKNOWN) [Suspect]
     Active Substance: RITUXIMAB
     Indication: HAIRY CELL LEUKAEMIA
     Dosage: 375 MG/M2 EVERY TWO WEEKS
     Route: 065

REACTIONS (7)
  - Systemic mastocytosis [Unknown]
  - Off label use [Unknown]
  - Haematopoietic neoplasm [Unknown]
  - Rash maculo-papular [Recovered/Resolved]
  - Intentional product use issue [Unknown]
  - Agranulocytosis [Unknown]
  - Product use in unapproved indication [Unknown]
